FAERS Safety Report 7946187-5 (Version None)
Quarter: 2011Q4

REPORT INFORMATION
  Report Type: 
  Country: None (occurrence: None)
  Receive Date: 20111129
  Receipt Date: 20111124
  Transmission Date: 20120403
  Serious: Yes (Hospitalization, Other)
  Sender: FDA-Public Use
  Company Number: JP-PFIZER INC-2011231431

PATIENT
  Age: 86 Year
  Sex: Male

DRUGS (9)
  1. PHENYTOIN SODIUM CAP [Concomitant]
     Indication: EPILEPSY
     Dosage: 1 G, 3X/DAY
     Route: 048
     Dates: start: 20110916
  2. BIO THREE [Concomitant]
     Indication: DIARRHOEA
     Dosage: 2 DF, 3X/DAY
     Route: 048
     Dates: start: 20110916
  3. UNASYN [Suspect]
     Indication: PNEUMONIA
     Dosage: 3 G, 2X/DAY
     Route: 041
     Dates: start: 20110912, end: 20110914
  4. ZOSYN [Suspect]
     Indication: PNEUMONIA
     Dosage: 4.5 G, 3X/DAY
     Route: 041
     Dates: start: 20110914, end: 20110921
  5. CLINDAMYCIN HCL [Suspect]
     Indication: PNEUMONIA
     Dosage: 600 MG, 3X/DAY
     Route: 041
     Dates: start: 20110921, end: 20110928
  6. TEGRETOL [Concomitant]
     Indication: EPILEPSY
     Dosage: 200 MG, 1X/DAY
     Route: 048
     Dates: start: 20110916
  7. CEFOPERAZONE SODIUM [Suspect]
     Indication: PNEUMONIA
     Dosage: 1 G, 3X/DAY
     Route: 041
     Dates: start: 20110921, end: 20110928
  8. SULFAMETHOXAZOLE AND TRIMETHOPRIM [Suspect]
     Indication: PNEUMONIA
     Dosage: 2 DF, 2X/DAY
     Route: 048
     Dates: start: 20110921, end: 20110928
  9. CONIEL [Concomitant]
     Indication: HYPERTENSION
     Dosage: 4 MG, 1X/DAY
     Route: 048
     Dates: start: 20110916

REACTIONS (1)
  - VITAMIN K DEFICIENCY [None]
